FAERS Safety Report 12592716 (Version 2)
Quarter: 2016Q4

REPORT INFORMATION
  Report Type: Spontaneous
  Country: US (occurrence: US)
  Receive Date: 20160726
  Receipt Date: 20161003
  Transmission Date: 20170207
  Serious: No
  Sender: FDA-Public Use
  Company Number: US-PFIZER INC-2016350285

PATIENT
  Age: 90 Year
  Sex: Male

DRUGS (1)
  1. ZOLOFT [Suspect]
     Active Substance: SERTRALINE HYDROCHLORIDE
     Indication: SEDATION
     Dosage: UNK

REACTIONS (4)
  - Confusional state [Recovering/Resolving]
  - Drug ineffective for unapproved indication [Recovering/Resolving]
  - Sleep disorder [Recovering/Resolving]
  - Agitation [Recovering/Resolving]
